FAERS Safety Report 5853395-6 (Version None)
Quarter: 2008Q3

REPORT INFORMATION
  Report Type: 
  Country: None (occurrence: None)
  Receive Date: 20080821
  Receipt Date: 20080811
  Transmission Date: 20090109
  Serious: Yes (Other)
  Sender: FDA-Public Use
  Company Number: US-PFIZER INC-2008066802

PATIENT
  Sex: Male
  Weight: 61.7 kg

DRUGS (8)
  1. INSPRA [Suspect]
     Indication: VENTRICULAR ARRHYTHMIA
     Dosage: DAILY DOSE:25MG-TEXT:25 MG-FREQ:ONCE DAILY
  2. INSPRA [Suspect]
     Indication: HYPERTENSION
     Dosage: DAILY DOSE:50MG-TEXT:50 MG-FREQ:ONCE DAILY
  3. INSPRA [Suspect]
     Indication: CARDIAC FAILURE CONGESTIVE
  4. AMIODARONE [Concomitant]
  5. COREG [Concomitant]
  6. COZAAR [Concomitant]
  7. LIPITOR [Concomitant]
  8. ASPIRIN [Concomitant]

REACTIONS (6)
  - ABDOMINAL PAIN UPPER [None]
  - BALANCE DISORDER [None]
  - COORDINATION ABNORMAL [None]
  - DIZZINESS [None]
  - EMOTIONAL DISTRESS [None]
  - NASOPHARYNGITIS [None]
